FAERS Safety Report 5570852-0 (Version None)
Quarter: 2007Q4

REPORT INFORMATION
  Report Type: 
  Country: None (occurrence: None)
  Receive Date: 20071221
  Receipt Date: 20071213
  Transmission Date: 20080405
  Serious: Yes (Hospitalization)
  Sender: FDA-Public Use
  Company Number: US-ROCHE-511534

PATIENT
  Age: 41 Year
  Sex: Female

DRUGS (6)
  1. PEGASYS [Suspect]
     Route: 065
     Dates: start: 20070302
  2. RIBAVIRIN [Suspect]
     Route: 065
     Dates: start: 20070302
  3. RIBAVIRIN [Suspect]
     Route: 065
  4. NEUPOGEN [Concomitant]
     Route: 065
  5. SEROQUEL [Concomitant]
     Dosage: DRUG REPORTED AS 'SERAQUEL' AND THE DOSE WAS INCREASED ON AN UNSPECIFIED DATE
  6. PROCRIT [Concomitant]
     Route: 065

REACTIONS (20)
  - ANAEMIA [None]
  - ANGER [None]
  - BLOOD POTASSIUM DECREASED [None]
  - CONFUSIONAL STATE [None]
  - CONVULSION [None]
  - COUGH [None]
  - DEPRESSION [None]
  - DIZZINESS [None]
  - DRY MOUTH [None]
  - DRY THROAT [None]
  - DYSPHONIA [None]
  - FATIGUE [None]
  - INSOMNIA [None]
  - IRRITABILITY [None]
  - MEMORY IMPAIRMENT [None]
  - NAUSEA [None]
  - NIGHT SWEATS [None]
  - PNEUMONIA [None]
  - VOMITING [None]
  - WEIGHT DECREASED [None]
